FAERS Safety Report 19575454 (Version 1)
Quarter: 2021Q3

REPORT INFORMATION
  Report Type: Spontaneous
  Country: FR (occurrence: FR)
  Receive Date: 20210719
  Receipt Date: 20210719
  Transmission Date: 20211014
  Serious: Yes (Hospitalization)
  Sender: FDA-Public Use
  Company Number: FR-JNJFOC-20210733882

PATIENT
  Age: 85 Year
  Sex: Female

DRUGS (2)
  1. TRAMADOL HYDROCHLORIDE. [Suspect]
     Active Substance: TRAMADOL HYDROCHLORIDE
     Indication: CERVICAL RADICULOPATHY
     Dosage: 200 MILLIGRAM, 1/DAY
     Route: 048
     Dates: start: 20210211, end: 20210213
  2. LAROXYL [Suspect]
     Active Substance: AMITRIPTYLINE HYDROCHLORIDE
     Indication: PRODUCT USED FOR UNKNOWN INDICATION
     Dosage: 10 DROP, 1/DAY
     Route: 048
     Dates: start: 20210208, end: 20210213

REACTIONS (3)
  - Confusional state [Recovering/Resolving]
  - Fall [Recovering/Resolving]
  - Mydriasis [Recovering/Resolving]

NARRATIVE: CASE EVENT DATE: 20210213
